FAERS Safety Report 18642923 (Version 1)
Quarter: 2020Q4

REPORT INFORMATION
  Report Type: Spontaneous
  Country: FR (occurrence: FR)
  Receive Date: 20201221
  Receipt Date: 20201221
  Transmission Date: 20210114
  Serious: Yes (Other)
  Sender: FDA-Public Use
  Company Number: FR-009507513-2012FRA004638

PATIENT
  Age: 38 Year
  Sex: Male

DRUGS (3)
  1. LEVOFLOXACIN. [Suspect]
     Active Substance: LEVOFLOXACIN
     Indication: POSTOPERATIVE WOUND INFECTION
     Route: 042
     Dates: start: 20201030, end: 20201116
  2. TARGOCID [Suspect]
     Active Substance: TEICOPLANIN
     Indication: POSTOPERATIVE WOUND INFECTION
     Dosage: ON 19 OCT 600 MG 2 PER DAY THEN 600 MG DAILY SINCE 24 OCT 2020
     Route: 042
     Dates: start: 20201019, end: 20201116
  3. TIENAM 500MG/500MG, POUDRE POUR PERFUSION [Suspect]
     Active Substance: CILASTATIN SODIUM\IMIPENEM
     Indication: POSTOPERATIVE WOUND INFECTION
     Route: 042
     Dates: start: 20201019, end: 20201116

REACTIONS (2)
  - Thrombocytopenia [Recovering/Resolving]
  - Hepatocellular injury [Not Recovered/Not Resolved]

NARRATIVE: CASE EVENT DATE: 20201116
